FAERS Safety Report 21151138 (Version 10)
Quarter: 2023Q4

REPORT INFORMATION
  Report Type: Report from Study
  Country: AT (occurrence: AT)
  Receive Date: 20220729
  Receipt Date: 20231023
  Transmission Date: 20240109
  Serious: Yes (Hospitalization, Other)
  Sender: FDA-Public Use
  Company Number: AT-CELLTRION INC.-2019AT028867

PATIENT

DRUGS (187)
  1. ONTRUZANT [Suspect]
     Active Substance: TRASTUZUMAB-DTTB
     Indication: Breast cancer metastatic
     Dosage: 420 MG, EVERY 3 WEEKS
     Route: 042
     Dates: start: 20181128, end: 20181128
  2. ONTRUZANT [Suspect]
     Active Substance: TRASTUZUMAB-DTTB
     Dosage: 408 MG, EVERY 3 WEEKS
     Route: 042
     Dates: start: 20181219, end: 20200424
  3. ONTRUZANT [Suspect]
     Active Substance: TRASTUZUMAB-DTTB
     Dosage: 408 MG, EVERY 3 WEEKS
     Route: 042
     Dates: start: 20211224
  4. ONTRUZANT [Suspect]
     Active Substance: TRASTUZUMAB-DTTB
     Dosage: 450 MG, EVERY 3 WEEKS
     Route: 042
     Dates: start: 20200515, end: 20210402
  5. ONTRUZANT [Suspect]
     Active Substance: TRASTUZUMAB-DTTB
     Dosage: 438 MG, EVERY 3 WEEKS
     Route: 042
     Dates: start: 20181017, end: 20181017
  6. TRASTUZUMAB [Suspect]
     Active Substance: TRASTUZUMAB
     Indication: Breast cancer metastatic
     Dosage: 712 MG EVERY 3 WEEKS, MOST RECENT DOSE PRIOR TO THE EVENT: 14/JUL/2017, 08/JUN/2018, 23/JUL/2018, 08
     Route: 042
     Dates: start: 20170324
  7. TRASTUZUMAB [Suspect]
     Active Substance: TRASTUZUMAB
     Dosage: 712 MG EVERY 3 WEEKS, MOST RECENT DOSE PRIOR TO THE EVENT: 14/JUL/2017, 08/JUN/2018, 23/JUL/2018, 08
     Route: 042
     Dates: start: 20170324, end: 20170324
  8. TRASTUZUMAB [Suspect]
     Active Substance: TRASTUZUMAB
     Dosage: 438 MG EVERY 3 WEEKS
     Route: 042
     Dates: start: 20180926
  9. TRASTUZUMAB [Suspect]
     Active Substance: TRASTUZUMAB
     Dosage: 408 MG, EVERY 3 WEEKS (ON 24/APR/2020, MOST RECENT DOSE
     Route: 041
     Dates: start: 20181219, end: 20210424
  10. TRASTUZUMAB [Suspect]
     Active Substance: TRASTUZUMAB
     Dosage: 712 MG EVERY 3 WEEKS, MOST RECENT DOSE PRIOR TO THE EVENT: 14/JUL/2017, 08/JUN/2018, 23/JUL/2018, 08
     Route: 041
     Dates: start: 20170324, end: 20170324
  11. TRASTUZUMAB [Suspect]
     Active Substance: TRASTUZUMAB
     Dosage: 438 MG EVERY 3 WEEKS
     Route: 042
     Dates: start: 20181017, end: 20181017
  12. TRASTUZUMAB [Suspect]
     Active Substance: TRASTUZUMAB
     Dosage: 420 MG EVERY 3 WEEKS
     Route: 041
     Dates: start: 20181128, end: 20181128
  13. TRASTUZUMAB [Suspect]
     Active Substance: TRASTUZUMAB
     Dosage: 438 MG EVERY 3 WEEKS
     Route: 041
     Dates: start: 20180926
  14. TRASTUZUMAB [Suspect]
     Active Substance: TRASTUZUMAB
     Dosage: 438 MG, EVERY 3 WEEKS
     Route: 041
     Dates: start: 20180926, end: 20180926
  15. TRASTUZUMAB [Suspect]
     Active Substance: TRASTUZUMAB
     Dosage: 474 MG, EVERY 3 WEEKS
     Route: 042
     Dates: start: 20171213, end: 20180514
  16. TRASTUZUMAB [Suspect]
     Active Substance: TRASTUZUMAB
     Dosage: 420 MG EVERY 3 WEEKS
     Route: 041
     Dates: start: 20181128, end: 20181128
  17. TRASTUZUMAB [Suspect]
     Active Substance: TRASTUZUMAB
     Dosage: 480 MG, EVERY 3 WEEKS
     Route: 042
     Dates: start: 20170828, end: 20171030
  18. TRASTUZUMAB [Suspect]
     Active Substance: TRASTUZUMAB
     Dosage: 534 MG, EVERY 3 WEEKS
     Route: 042
     Dates: start: 20170714, end: 20170804
  19. TRASTUZUMAB [Suspect]
     Active Substance: TRASTUZUMAB
     Dosage: 462 MG, EVERY 3 WEEKS
     Route: 042
     Dates: start: 20180608, end: 20180608
  20. TRASTUZUMAB [Suspect]
     Active Substance: TRASTUZUMAB
     Dosage: 450 MG, EVERY 3 WEEKS
     Route: 042
     Dates: start: 20180723, end: 20180904
  21. TRASTUZUMAB [Suspect]
     Active Substance: TRASTUZUMAB
     Dosage: 534 MG, EVERY 3 WEEKS
     Route: 042
     Dates: start: 20170414, end: 20170619
  22. TRASTUZUMAB [Suspect]
     Active Substance: TRASTUZUMAB
     Dosage: 712 MG, EVERY 3 WEEKS, MOST RECENT DOSE PRIOR TO THE EVENT: 14/JUL/2017
     Route: 042
     Dates: start: 20170324, end: 20170324
  23. TRASTUZUMAB [Suspect]
     Active Substance: TRASTUZUMAB
     Dosage: 712 MG, EVERY 3 WEEKS
     Route: 042
     Dates: start: 20170324, end: 20170324
  24. TRASTUZUMAB [Suspect]
     Active Substance: TRASTUZUMAB
     Dosage: EVERY 3 WEEKS
     Route: 042
     Dates: start: 20181017, end: 20181017
  25. TRASTUZUMAB [Suspect]
     Active Substance: TRASTUZUMAB
     Dosage: EVERY 3 WEEKS
     Route: 042
     Dates: start: 20181219
  26. TRASTUZUMAB [Suspect]
     Active Substance: TRASTUZUMAB
     Dosage: EVERY 3 WEEKS
     Route: 042
     Dates: start: 20200515
  27. TRASTUZUMAB [Suspect]
     Active Substance: TRASTUZUMAB
     Dosage: EVERY 3 WEEKS
     Route: 041
     Dates: start: 20181128, end: 20181128
  28. TRASTUZUMAB [Suspect]
     Active Substance: TRASTUZUMAB
     Dosage: 408 MG, EVERY 3 WEEKS (ON 24/APR/2020, MOST RECENT DOSE
     Route: 042
     Dates: end: 20210424
  29. TRASTUZUMAB [Suspect]
     Active Substance: TRASTUZUMAB
     Dosage: 438 MG EVERY 3 WEEKS
     Route: 042
     Dates: start: 20180926, end: 20180926
  30. TRASTUZUMAB [Suspect]
     Active Substance: TRASTUZUMAB
     Dosage: 450 MG, EVERY 3 WEEKS
     Route: 042
     Dates: start: 20200515
  31. TRASTUZUMAB [Suspect]
     Active Substance: TRASTUZUMAB
     Indication: Breast cancer metastatic
     Dosage: 438 MG EVERY 3 WEEKS
     Route: 041
     Dates: start: 20181017, end: 20181017
  32. TRASTUZUMAB [Suspect]
     Active Substance: TRASTUZUMAB
     Indication: Breast cancer
     Dosage: 420 MG, EVERY 3 WEEKS
     Route: 041
     Dates: start: 20181128, end: 20181128
  33. TRASTUZUMAB [Suspect]
     Active Substance: TRASTUZUMAB
     Dosage: 408 MG EVERY 3 WEEKS (ON 24/APR/2020, MOST RECENT DOSE)
     Route: 041
     Dates: start: 20181219, end: 20200424
  34. TRASTUZUMAB [Suspect]
     Active Substance: TRASTUZUMAB
     Dosage: 438 MG
     Route: 042
     Dates: start: 20180926
  35. TRASTUZUMAB [Suspect]
     Active Substance: TRASTUZUMAB
     Dosage: 712 MG EVERY 3 WEEKS (MOST RECENT DOSE PRIOR TO THE EVENT: 14/JUL/2017, 08/JUN/2018, 23/JUL/2018, 08
     Route: 042
     Dates: start: 20170324, end: 20170324
  36. TRASTUZUMAB [Suspect]
     Active Substance: TRASTUZUMAB
     Dosage: 450 MG EVERY 3 WEEKS (ONGOING)
     Route: 042
     Dates: start: 20200515
  37. TRASTUZUMAB [Suspect]
     Active Substance: TRASTUZUMAB
     Dosage: 462 MG EVERY 3 WEEKS
     Route: 042
     Dates: start: 20180608, end: 20180608
  38. TRASTUZUMAB [Suspect]
     Active Substance: TRASTUZUMAB
     Dosage: 438 MG EVERY 3 WEEKS
     Route: 042
     Dates: start: 20180926, end: 20180926
  39. TRASTUZUMAB [Suspect]
     Active Substance: TRASTUZUMAB
     Dosage: 534 MG EVERY 3 WEEKS
     Route: 042
     Dates: start: 20170414, end: 20170619
  40. TRASTUZUMAB [Suspect]
     Active Substance: TRASTUZUMAB
     Dosage: 712 MG EVERY 3 WEEKS
     Route: 042
     Dates: start: 20170324, end: 20170324
  41. TRASTUZUMAB [Suspect]
     Active Substance: TRASTUZUMAB
     Dosage: 480 MG EVERY 3 WEEKS
     Route: 042
     Dates: start: 20170828, end: 20171030
  42. TRASTUZUMAB [Suspect]
     Active Substance: TRASTUZUMAB
     Dosage: 534 MG EVERY 3 WEEKS
     Route: 042
     Dates: start: 20170714, end: 20170804
  43. TRASTUZUMAB [Suspect]
     Active Substance: TRASTUZUMAB
     Dosage: 450 MG EVERY 3 WEEKS
     Route: 042
     Dates: start: 20180723, end: 20180904
  44. TRASTUZUMAB [Suspect]
     Active Substance: TRASTUZUMAB
     Dosage: 474 MG EVERY 3 WEEKS
     Route: 042
     Dates: start: 20171213, end: 20180514
  45. TRASTUZUMAB [Suspect]
     Active Substance: TRASTUZUMAB
     Dosage: 408 MG EVERY 3 WEEKS (ON 24/APR/2020, MOST RECENT DOSE)
     Route: 041
     Dates: start: 20181219, end: 20200424
  46. TRASTUZUMAB [Suspect]
     Active Substance: TRASTUZUMAB
     Dosage: 712 MG EVERY 3 WEEKS (MOST RECENT DOSE PRIOR TO THE EVENT:07/NOV/2018)
     Route: 042
     Dates: start: 20170324
  47. TRASTUZUMAB [Suspect]
     Active Substance: TRASTUZUMAB
     Dosage: 408 MG, EVERY 3 WEEKS (ON 24/APR/2020, MOST RECENT DOSE )
     Route: 041
     Dates: start: 20210424
  48. TRASTUZUMAB [Suspect]
     Active Substance: TRASTUZUMAB
     Dosage: UNK, EVERY 3 WEEKS
     Route: 042
     Dates: start: 20181219
  49. TRASTUZUMAB [Suspect]
     Active Substance: TRASTUZUMAB
     Dosage: UNK, EVERY 3 WEEKS
     Route: 041
     Dates: start: 20181219
  50. TRASTUZUMAB [Suspect]
     Active Substance: TRASTUZUMAB
     Dosage: 408 MG, EVERY 3 WEEKS (ON 24/APR/2020, MOST RECENT DOSE
     Route: 042
     Dates: end: 20210424
  51. TRASTUZUMAB [Suspect]
     Active Substance: TRASTUZUMAB
     Dosage: UNK, EVERY 3 WEEKS
     Route: 042
     Dates: start: 20181017, end: 20181017
  52. TRASTUZUMAB [Suspect]
     Active Substance: TRASTUZUMAB
     Dosage: UNK, EVERY 3 WEEKS
     Route: 042
     Dates: start: 20181128, end: 20181128
  53. TRASTUZUMAB [Suspect]
     Active Substance: TRASTUZUMAB
     Dosage: 408 MG EVERY 3 WEEKS (ON 24/APR/2020, MOST RECENT DOSE)
     Route: 041
     Dates: start: 20181219
  54. TRASTUZUMAB [Suspect]
     Active Substance: TRASTUZUMAB
     Dosage: 408 MG, EVERY 3 WEEKS
     Route: 042
     Dates: end: 20210424
  55. TRASTUZUMAB [Suspect]
     Active Substance: TRASTUZUMAB
     Dosage: UNK, EVERY 3 WEEKS
     Route: 042
     Dates: start: 20200515
  56. TRASTUZUMAB [Suspect]
     Active Substance: TRASTUZUMAB
     Dosage: 462 MG EVERY 3 WEEKS
     Route: 030
     Dates: start: 20180608, end: 20180608
  57. TRASTUZUMAB [Suspect]
     Active Substance: TRASTUZUMAB
     Dosage: 438 MG EVERY 3 WEEKS
     Route: 042
     Dates: start: 20181017, end: 20181017
  58. TRASTUZUMAB [Suspect]
     Active Substance: TRASTUZUMAB
     Dosage: 408 MG EVERY 3 WEEKS
     Route: 042
     Dates: start: 20181219, end: 20200424
  59. TRASTUZUMAB [Suspect]
     Active Substance: TRASTUZUMAB
     Dosage: 534 MG EVERY 3 WEEKS
     Route: 042
     Dates: start: 20200515
  60. TRASTUZUMAB [Suspect]
     Active Substance: TRASTUZUMAB
     Dosage: 420 MG, EVERY 3 WEEKS
     Route: 042
     Dates: start: 20181128, end: 20181128
  61. TRASTUZUMAB [Suspect]
     Active Substance: TRASTUZUMAB
     Indication: Breast cancer metastatic
     Dosage: 408 MG EVERY 3 WEEKS
     Route: 042
     Dates: end: 20210424
  62. TRASTUZUMAB [Suspect]
     Active Substance: TRASTUZUMAB
     Dosage: 438 MG EVERY 3 WEEKS
     Route: 042
     Dates: start: 20181017, end: 20181017
  63. TRASTUZUMAB [Suspect]
     Active Substance: TRASTUZUMAB
     Dosage: 408 MG EVERY 3 WEEKS (ON 24/APR/2020, MOST RECENT DOSE)
     Route: 042
     Dates: start: 20181219, end: 20200424
  64. TRASTUZUMAB [Suspect]
     Active Substance: TRASTUZUMAB
     Dosage: 420 MG EVERY 3 WEEKS
     Route: 042
     Dates: start: 20181128, end: 20181128
  65. TRASTUZUMAB [Suspect]
     Active Substance: TRASTUZUMAB
     Dosage: 450 MG EVERY 3 WEEKS, ONGOING
     Route: 042
     Dates: start: 20200515
  66. TRASTUZUMAB [Suspect]
     Active Substance: TRASTUZUMAB
     Dosage: 712 EVERY 3 WEEKS
     Route: 042
     Dates: start: 20170324, end: 20170324
  67. ANASTROZOLE [Suspect]
     Active Substance: ANASTROZOLE
     Indication: Breast cancer metastatic
     Dosage: 1 MG, QD (MOST RECENT DOSE PRIOR TO AE 14/MAY/2018) CUMULATIVE DOSE TO FIRST REACTION: 469 MG
     Route: 048
     Dates: start: 20170324
  68. ANASTROZOLE [Suspect]
     Active Substance: ANASTROZOLE
     Dosage: 1 MG, QD (MOST RECENT DOSE PRIOR TO AE 14/MAY/2018) CUMULATIVE DOSE TO FIRST REACTION: 463 MG
     Route: 048
     Dates: start: 20170324
  69. ANASTROZOLE [Suspect]
     Active Substance: ANASTROZOLE
     Dosage: 1 MG, 1X/DAY, MOST RECENT DOSE PRIOR TO AE 14/MAY/2018/ 1 MG, 1X/DAY,
     Route: 048
     Dates: start: 20170324
  70. ANASTROZOLE [Suspect]
     Active Substance: ANASTROZOLE
     Indication: Breast cancer metastatic
     Dosage: 1 MG, QD (MOST RECENT DOSE PRIOR TO AE 14/MAY/2018)
     Route: 042
     Dates: start: 20170324
  71. ANASTROZOLE [Suspect]
     Active Substance: ANASTROZOLE
     Dosage: 1 MG, QD
     Route: 048
     Dates: start: 20170324, end: 20180514
  72. ARIMIDEX [Suspect]
     Active Substance: ANASTROZOLE
     Indication: HER2 positive breast cancer
     Dosage: 1 MG/DAY/MOST RECENT DOSE OF ANASTROZOL PRIOR TO THE EVENT: 14/MAY/2018
     Route: 048
     Dates: start: 20170324, end: 20180514
  73. DENOSUMAB [Suspect]
     Active Substance: DENOSUMAB
     Indication: Breast cancer metastatic
     Dosage: 120 MILLIGRAM, MONTHLY (MOST RECENT DOSE PRIOR TO THE EVENT: 02/MAR/2021)
     Route: 058
     Dates: start: 20170505, end: 20180329
  74. DENOSUMAB [Suspect]
     Active Substance: DENOSUMAB
     Indication: Breast cancer
     Dosage: ONGOING = NOT CHECKED
     Route: 042
     Dates: start: 20181017, end: 20201127
  75. DENOSUMAB [Suspect]
     Active Substance: DENOSUMAB
     Dosage: 120 MILLIGRAM, MONTHLY (MOST RECENT DOSE PRIOR TO THE EVENT: 02/MAR/2021)
     Route: 042
     Dates: start: 20170505, end: 20180329
  76. DOCETAXEL [Suspect]
     Active Substance: DOCETAXEL
     Indication: Breast cancer metastatic
     Dosage: 137 MG EVERY 3 WEEKS; DATE OF MOST RECENT DOSE: 23/JUL/2018/ 137 MG, EVERY 3 WEEKS,
     Route: 042
     Dates: start: 20180608, end: 20180608
  77. DOCETAXEL [Suspect]
     Active Substance: DOCETAXEL
     Indication: Breast cancer
     Dosage: 106.22 MG EVERY 3 WEEKS
     Route: 042
     Dates: start: 20181017, end: 20181017
  78. DOCETAXEL [Suspect]
     Active Substance: DOCETAXEL
     Dosage: 106 MG EVERY 3 WEEKS
     Route: 042
     Dates: start: 20181017, end: 20181017
  79. DOCETAXEL [Suspect]
     Active Substance: DOCETAXEL
     Dosage: 132.78 MG EVERY 3 WEEKS
     Route: 042
     Dates: start: 20180926, end: 20180926
  80. DOCETAXEL [Suspect]
     Active Substance: DOCETAXEL
     Dosage: 134.32 MG EVERY 3 WEEKS
     Route: 042
     Dates: start: 20180723, end: 20180904
  81. DOCETAXEL [Suspect]
     Active Substance: DOCETAXEL
     Dosage: 135 MG EVERY 3 WEEKS
     Route: 042
     Dates: start: 20180723, end: 20180904
  82. DOCETAXEL [Suspect]
     Active Substance: DOCETAXEL
     Dosage: 133 MG EVERY 3 WEEKS
     Route: 042
     Dates: start: 20180926, end: 20180926
  83. DOCETAXEL [Suspect]
     Active Substance: DOCETAXEL
     Dosage: 137 MG, EVERY 3 WEEKS; MOST RECENT DOSE PRIOR TO THE EVENT: 17/OCT/2018
     Route: 042
     Dates: start: 20180608
  84. DOCETAXEL [Suspect]
     Active Substance: DOCETAXEL
     Dosage: 137 MG, EVERY 3 WEEKS; MOST RECENT DOSE PRIOR TO THE EVENT: 17/OCT/2018
     Route: 030
     Dates: start: 20180608
  85. DOCETAXEL [Suspect]
     Active Substance: DOCETAXEL
     Indication: Breast cancer metastatic
     Dosage: 137 MG EVERY 3 WEEKS
     Route: 042
     Dates: start: 20180608, end: 20180608
  86. DOCETAXEL [Suspect]
     Active Substance: DOCETAXEL
     Dosage: 132.78 MG EVERY 3 WEEKS
     Route: 042
     Dates: start: 20180926, end: 20180926
  87. DOCETAXEL [Suspect]
     Active Substance: DOCETAXEL
     Dosage: 106.22 MG EVERY 3 WEEKS
     Route: 042
     Dates: start: 20181017, end: 20181017
  88. DOCETAXEL [Suspect]
     Active Substance: DOCETAXEL
     Dosage: 134.32 MG EVERY 3 WEEKS
     Route: 042
     Dates: start: 20180723, end: 20180904
  89. FASLODEX [Suspect]
     Active Substance: FULVESTRANT
     Indication: Breast cancer
     Dosage: EVERY 2 WEEKS (MOST RECENT DOSE OF FULVESTRANT PRIOR TO THE EVENT: 26/DEC/2018)
     Route: 030
     Dates: start: 20181128, end: 20181226
  90. FASLODEX [Suspect]
     Active Substance: FULVESTRANT
     Dosage: 500 MG, EVERY 2 WEEKS
     Route: 030
     Dates: start: 20181226
  91. FULVESTRANT [Suspect]
     Active Substance: FULVESTRANT
     Indication: Breast cancer metastatic
     Dosage: 500 MG, Q2WEEKS; MOST RECENT DOSE PRIOR TO THE EVENT: 26/DEC/2018
     Route: 030
     Dates: start: 20181128, end: 20181226
  92. FULVESTRANT [Suspect]
     Active Substance: FULVESTRANT
     Indication: Breast cancer
     Dosage: 500 MG, Q2WEEKS (ONGOING)
     Route: 030
     Dates: start: 20181226
  93. FULVESTRANT [Suspect]
     Active Substance: FULVESTRANT
     Dosage: 500 MG, Q2WEEKS (MOST RECENT DOSE PRIOR TO THE EVENT: 26/DEC/2018)
     Route: 058
     Dates: start: 20181128
  94. FULVESTRANT [Suspect]
     Active Substance: FULVESTRANT
     Dosage: 500 MG, Q2WEEKS; MOST RECENT DOSE PRIOR TO THE EVENT: 26/DEC/2018/ 500 MG EVERY 2 WEEKS, FREQ:2 WK;
     Route: 030
     Dates: start: 20181128, end: 20181226
  95. FULVESTRANT [Suspect]
     Active Substance: FULVESTRANT
     Indication: Breast cancer metastatic
     Dosage: 500 MG, Q2WEEKS
     Route: 030
     Dates: start: 20181128
  96. FULVESTRANT [Suspect]
     Active Substance: FULVESTRANT
     Indication: Breast cancer
     Dosage: 500 MG, Q2WEEKS
     Route: 030
     Dates: start: 20181226
  97. FULVESTRANT [Suspect]
     Active Substance: FULVESTRANT
     Indication: Breast cancer metastatic
     Dosage: 500 MG, Q2WEEKS (REQ:2 WK;MOST RECENT DOSE PRIOR TO THE EVENT: 26DEC2018 500 MG EVERY 2 WEEKS, FREQ:
     Route: 030
     Dates: start: 20181128, end: 20181226
  98. FULVESTRANT [Suspect]
     Active Substance: FULVESTRANT
     Dosage: 500 MG, Q2WEEKS ONGOING
     Route: 030
     Dates: start: 20181226
  99. HERCEPTIN [Suspect]
     Active Substance: TRASTUZUMAB
     Indication: HER2 positive breast cancer
     Dosage: 3 WEEK
     Route: 042
     Dates: start: 20181017, end: 20181017
  100. HERCEPTIN [Suspect]
     Active Substance: TRASTUZUMAB
     Dosage: 3 WEEK, 408 MG, EVERY 3 WEEKS (ON 24/APR/2020, MOST RECENT DOSE
     Route: 042
     Dates: start: 20210424
  101. HERCEPTIN [Suspect]
     Active Substance: TRASTUZUMAB
     Dosage: 3 WEEK
     Route: 042
     Dates: start: 20200515
  102. HERCEPTIN [Suspect]
     Active Substance: TRASTUZUMAB
     Dosage: 438 MG, 3 WEEK
     Route: 042
     Dates: start: 20180926, end: 20180926
  103. HERCEPTIN [Suspect]
     Active Substance: TRASTUZUMAB
     Dosage: 480 MG, 3 WEEK
     Route: 042
     Dates: start: 20170828, end: 20171030
  104. HERCEPTIN [Suspect]
     Active Substance: TRASTUZUMAB
     Dosage: 462 MG, 3 WEEK
     Route: 042
     Dates: start: 20180608, end: 20180608
  105. HERCEPTIN [Suspect]
     Active Substance: TRASTUZUMAB
     Dosage: 474 MG, 3 WEEK
     Route: 042
     Dates: start: 20171213, end: 20180514
  106. HERCEPTIN [Suspect]
     Active Substance: TRASTUZUMAB
     Dosage: 534 MG, 3 WEEK
     Route: 042
     Dates: start: 20170414, end: 20170619
  107. HERCEPTIN [Suspect]
     Active Substance: TRASTUZUMAB
     Dosage: 450 MG, 3 WEEK
     Route: 042
     Dates: start: 20180723, end: 20180904
  108. HERCEPTIN [Suspect]
     Active Substance: TRASTUZUMAB
     Dosage: 534 MG, 3 WEEK
     Route: 042
     Dates: start: 20170714, end: 20170804
  109. HERCEPTIN [Suspect]
     Active Substance: TRASTUZUMAB
     Dosage: 3 WEEK
     Route: 042
     Dates: start: 20181128, end: 20181128
  110. HERCEPTIN [Suspect]
     Active Substance: TRASTUZUMAB
     Dosage: 712 MG, 3 WEEK
     Route: 042
     Dates: start: 20170324, end: 20170324
  111. HERCEPTIN [Suspect]
     Active Substance: TRASTUZUMAB
     Dosage: 3 WEEK
     Route: 042
     Dates: start: 20181219
  112. HERCEPTIN [Suspect]
     Active Substance: TRASTUZUMAB
     Dosage: 420 MG
     Route: 042
     Dates: start: 20181107, end: 20181107
  113. PERJETA [Suspect]
     Active Substance: PERTUZUMAB
     Indication: HER2 positive breast cancer
     Dosage: 840 MG, EVERY 3 WEEKS
     Route: 042
     Dates: start: 20170324, end: 20170324
  114. PERJETA [Suspect]
     Active Substance: PERTUZUMAB
     Dosage: 840 MG, EVERY 3 WEEKS
     Route: 042
     Dates: start: 20170714
  115. PERJETA [Suspect]
     Active Substance: PERTUZUMAB
     Dosage: 420 MG, EVERY 3 WEEKS
     Route: 042
     Dates: start: 20171213, end: 20180608
  116. PERJETA [Suspect]
     Active Substance: PERTUZUMAB
     Dosage: ONGOING
     Route: 042
     Dates: start: 20180723
  117. PERJETA [Suspect]
     Active Substance: PERTUZUMAB
     Dosage: 420 MG, EVERY 1 WEEK
     Route: 042
     Dates: start: 20170414, end: 20170619
  118. PERJETA [Suspect]
     Active Substance: PERTUZUMAB
     Dosage: 420 MG, EVERY 1 WEEK
     Route: 042
     Dates: start: 20170714, end: 20171030
  119. PERJETA [Suspect]
     Active Substance: PERTUZUMAB
     Dosage: 420 MG, EVERY 3 WEEKS
     Route: 042
     Dates: start: 20180723
  120. PERJETA [Suspect]
     Active Substance: PERTUZUMAB
     Dosage: UNK
  121. PERTUZUMAB [Suspect]
     Active Substance: PERTUZUMAB
     Indication: Breast cancer
     Dosage: 840 MG, EVERY 3 WEEKS (MOST RECENT DOSE PRIOR TO THE EVENT: 14/JUL/2017, 13/DEC/2017, 23/JUL/2018
     Route: 042
     Dates: start: 20170324, end: 20170324
  122. PERTUZUMAB [Suspect]
     Active Substance: PERTUZUMAB
     Indication: Breast cancer metastatic
     Dosage: 420 MG EVERY 3 WEEKS (ONGOING)
     Route: 042
     Dates: start: 20180723
  123. PERTUZUMAB [Suspect]
     Active Substance: PERTUZUMAB
     Dosage: 420 MG EVERY 3 WEEKS
     Route: 042
     Dates: start: 20171213, end: 20180608
  124. PERTUZUMAB [Suspect]
     Active Substance: PERTUZUMAB
     Dosage: 420 MG EVERY 3 WEEKS
     Route: 042
     Dates: start: 20170414, end: 20170619
  125. PERTUZUMAB [Suspect]
     Active Substance: PERTUZUMAB
     Dosage: 420 MG EVERY 3 WEEKS
     Route: 042
     Dates: start: 20170714, end: 20171030
  126. PERTUZUMAB [Suspect]
     Active Substance: PERTUZUMAB
     Dosage: 840 MG, EVERY 3 WEEKS (MOST RECENT DOSE PRIOR TO THE EVENT: 14/JUL/2017, 13/DEC/2017, 23/JUL/2018
     Route: 042
     Dates: start: 20170714, end: 20171030
  127. PERTUZUMAB [Suspect]
     Active Substance: PERTUZUMAB
     Dosage: 840 MG, EVERY 3 WEEKS (MOST RECENT DOSE PRIOR TO THE EVENT: 14/JUL/2017, 13/DEC/2017, 23/JUL/2018
     Route: 042
     Dates: start: 20170414, end: 20170619
  128. PERTUZUMAB [Suspect]
     Active Substance: PERTUZUMAB
     Dosage: 840 MG, EVERY 3 WEEKS (MOST RECENT DOSE PRIOR TO THE EVENT: 14/JUL/2017, 13/DEC/2017, 23/JUL/2018
     Route: 042
     Dates: start: 20171213, end: 20180608
  129. PERTUZUMAB [Suspect]
     Active Substance: PERTUZUMAB
     Dosage: 420 MG, WEEKLY
     Route: 042
     Dates: start: 20170414, end: 20170619
  130. PERTUZUMAB [Suspect]
     Active Substance: PERTUZUMAB
     Dosage: 420 MG, WEEKLY
     Route: 042
     Dates: start: 20170714, end: 20171030
  131. PERTUZUMAB [Suspect]
     Active Substance: PERTUZUMAB
     Dosage: 420 MG, WEEKLY
     Route: 042
     Dates: start: 20171213, end: 20180608
  132. PERTUZUMAB [Suspect]
     Active Substance: PERTUZUMAB
     Dosage: 420 MG, WEEKLY
     Route: 042
     Dates: start: 20180723
  133. PERTUZUMAB [Suspect]
     Active Substance: PERTUZUMAB
     Dosage: 840 MG, EVERY 3 WEEKS (MOST RECENT DOSE PRIOR TO THE EVENT: 14/JUL/2017, 13/DEC/2017, 23/JUL/2018
     Route: 042
     Dates: start: 20170714
  134. TAXOTERE [Suspect]
     Active Substance: DOCETAXEL
     Indication: HER2 positive breast cancer
     Dosage: 137 MG EVERY 3 WEEKS, (DATE OF MOST RECENT DOSE: 23/JUL/2018)/OCT/2018)/ EVERY 3 WEEKS/MOST RECENT D
     Route: 042
     Dates: start: 20180608
  135. TAXOTERE [Suspect]
     Active Substance: DOCETAXEL
     Dosage: 132.78 MG, EVERY 3 WEEKS
     Route: 042
     Dates: start: 20180926, end: 20180926
  136. TAXOTERE [Suspect]
     Active Substance: DOCETAXEL
     Dosage: 134.32 MG , EVERY 3 WEEKS
     Route: 042
     Dates: start: 20180723, end: 20180904
  137. TAXOTERE [Suspect]
     Active Substance: DOCETAXEL
     Dosage: 106.22 MG , EVERY 3 WEEKS
     Route: 042
     Dates: start: 20181017, end: 20181017
  138. XGEVA [Suspect]
     Active Substance: DENOSUMAB
     Indication: Breast cancer metastatic
     Dosage: UNK
     Dates: start: 20181017
  139. XGEVA [Suspect]
     Active Substance: DENOSUMAB
     Dosage: 120 MILLIGRAM, 1 MONTH (MOST RECENT DOSE PRIOR TO THE EVENT: 02/MAR/2021)
     Route: 058
     Dates: start: 20170505, end: 20180329
  140. XGEVA [Suspect]
     Active Substance: DENOSUMAB
     Dosage: MOST RECENT DOSE PRIOR TO THE EVENT: 17/OCT/2018, 02/MAR/2021, 10/MAR/2020
     Route: 058
     Dates: start: 20170505, end: 20180329
  141. XGEVA [Suspect]
     Active Substance: DENOSUMAB
     Indication: Breast cancer metastatic
     Dosage: 120 MILLIGRAM, MONTHLY (DOSAGE EXT: MOST RECENT DOSE PRIOR TO THE EVENT: 02/MAR/2021 )
     Route: 058
     Dates: start: 20170505, end: 20180329
  142. ASPIRIN [Concomitant]
     Active Substance: ASPIRIN
     Indication: Hypertension
     Dosage: UNK
     Route: 065
     Dates: start: 20171120, end: 20190615
  143. AVELOX [Concomitant]
     Active Substance: MOXIFLOXACIN HYDROCHLORIDE
     Indication: Dyspnoea exertional
     Dosage: ONGOING = NOT CHECKED
     Route: 065
     Dates: start: 20180712, end: 20180722
  144. CALCIUM CARBONATE\CHOLECALCIFEROL [Concomitant]
     Active Substance: CALCIUM CARBONATE\CHOLECALCIFEROL
     Dosage: UNK
     Route: 065
     Dates: start: 20170505, end: 20190615
  145. BISOPROLOL FUMARATE [Concomitant]
     Active Substance: BISOPROLOL FUMARATE
     Indication: Hypertension
     Dosage: ONGOING = NOT CHECKED
     Route: 065
     Dates: start: 20171213, end: 20180715
  146. BISOPROLOL FUMARATE [Concomitant]
     Active Substance: BISOPROLOL FUMARATE
     Dosage: ONGOING = NOT CHECKED
     Dates: start: 20180814, end: 20191007
  147. CORTISONE ACETATE [Concomitant]
     Active Substance: CORTISONE ACETATE
     Dosage: ONGOING = NOT CHECKED
     Route: 065
     Dates: start: 20180608, end: 20180608
  148. CORTISONE ACETATE [Concomitant]
     Active Substance: CORTISONE ACETATE
     Dosage: UNK
     Dates: start: 20180608, end: 20180608
  149. DEXABENE [Concomitant]
     Dosage: ONGOING = CHECKED
     Dates: start: 20181107
  150. DEXABENE [Concomitant]
     Dosage: UNK
     Dates: start: 20181107
  151. DEXAMETHASONE [Concomitant]
     Active Substance: DEXAMETHASONE
     Dosage: UNK
  152. DEXAMETHASONE [Concomitant]
     Active Substance: DEXAMETHASONE
     Dosage: UNK
     Route: 065
     Dates: start: 20170414, end: 20180514
  153. DIMETHINDENE [Concomitant]
     Active Substance: DIMETHINDENE
     Dosage: ONGOING = CHECKED
     Route: 065
     Dates: start: 20170414
  154. DIMETHINDENE [Concomitant]
     Active Substance: DIMETHINDENE
     Dosage: UNK
     Dates: start: 20170414
  155. DIMETHINDENE [Concomitant]
     Active Substance: DIMETHINDENE
     Dosage: UNK
  156. FERINJECT [Concomitant]
     Active Substance: FERRIC CARBOXYMALTOSE
     Indication: Iron deficiency
     Dosage: ONGOING = NOT CHECKED
     Dates: start: 20220218, end: 20220218
  157. FERINJECT [Concomitant]
     Active Substance: FERRIC CARBOXYMALTOSE
     Dosage: ONGOING = NOT CHECKED
     Dates: start: 20190826, end: 20190826
  158. DEXAMETHASONE [Concomitant]
     Active Substance: DEXAMETHASONE
     Dosage: ONGOING = NOT CHECKED
     Route: 065
     Dates: start: 20180723, end: 20181017
  159. DEXAMETHASONE [Concomitant]
     Active Substance: DEXAMETHASONE
     Dosage: ONGOING = CHECKED
     Dates: start: 20181017
  160. DEXAMETHASONE [Concomitant]
     Active Substance: DEXAMETHASONE
     Dosage: ONGOING = NOT CHECKED
     Dates: start: 20181017
  161. FOSTER [Concomitant]
     Active Substance: BECLOMETHASONE\FORMOTEROL
     Indication: Dyspnoea
     Dosage: ONGOING = CHECKED
     Route: 065
     Dates: start: 20171120
  162. KYTRIL [Concomitant]
     Active Substance: GRANISETRON HYDROCHLORIDE
     Dosage: ONGOING = CHECKED
     Route: 065
     Dates: start: 20180608, end: 20181017
  163. LANNAPRIL PLUS [Concomitant]
     Dosage: UNK
     Dates: start: 20210129, end: 20221124
  164. LOVENOX [Concomitant]
     Active Substance: ENOXAPARIN SODIUM
     Indication: Dyspnoea exertional
     Dosage: ONGOING = NOT CHECKED
     Route: 065
     Dates: start: 20180615, end: 20180713
  165. MEROPENEM [Concomitant]
     Active Substance: MEROPENEM
     Indication: Dyspnoea exertional
     Dosage: ONGOING = NOT CHECKED
     Route: 065
     Dates: start: 20180705, end: 20180712
  166. ACETAMINOPHEN [Concomitant]
     Active Substance: ACETAMINOPHEN
     Dosage: ONGOING = CHECKED
     Route: 065
     Dates: start: 20180715
  167. POLYETHYLENE GLYCOL 3350\POTASSIUM CHLORIDE\SODIUM BICARBONATE\SODIUM [Concomitant]
     Active Substance: POLYETHYLENE GLYCOL 3350\POTASSIUM CHLORIDE\SODIUM BICARBONATE\SODIUM CHLORIDE
     Dosage: ONGOING = CHECKED
     Route: 065
     Dates: start: 20180715
  168. NOVALGIN (AUSTRIA) [Concomitant]
     Indication: Dyspnoea exertional
     Dosage: ONGOING = CHECKED
     Dates: start: 20180715
  169. NOVALGINE (AUSTRIA) [Concomitant]
     Indication: Dyspnoea exertional
     Dosage: ONGOING = CHECKED
     Route: 065
     Dates: start: 20180715
  170. PANTOPRAZOLE [Concomitant]
     Active Substance: PANTOPRAZOLE
     Dosage: ONGOING = CHECKED
     Route: 065
  171. PANTOPRAZOLE [Concomitant]
     Active Substance: PANTOPRAZOLE
     Dosage: UNK
  172. PANTOPRAZOLE [Concomitant]
     Active Substance: PANTOPRAZOLE
  173. PANTOPRAZOLE [Concomitant]
     Active Substance: PANTOPRAZOLE
     Dosage: ONGOING = CHECKED
  174. PANTOPRAZOLE [Concomitant]
     Active Substance: PANTOPRAZOLE
     Dosage: UNK
     Route: 065
  175. PANTOPRAZOLE [Concomitant]
     Active Substance: PANTOPRAZOLE
     Dosage: UNK
     Route: 065
  176. HYDROCHLOROTHIAZIDE\RAMIPRIL [Concomitant]
     Active Substance: HYDROCHLOROTHIAZIDE\RAMIPRIL
     Dosage: ONGOING = CHECKED
     Route: 065
     Dates: start: 20210129
  177. HYDROCHLOROTHIAZIDE\RAMIPRIL [Concomitant]
     Active Substance: HYDROCHLOROTHIAZIDE\RAMIPRIL
     Dosage: UNK
  178. HYDROCHLOROTHIAZIDE\RAMIPRIL [Concomitant]
     Active Substance: HYDROCHLOROTHIAZIDE\RAMIPRIL
     Dosage: UNK
     Dates: start: 20200424
  179. RANITIDINE HYDROCHLORIDE [Concomitant]
     Active Substance: RANITIDINE HYDROCHLORIDE
     Dosage: ONGOING = NOT CHECKED
     Route: 065
     Dates: start: 20170414, end: 20191119
  180. RANITIDINE HYDROCHLORIDE [Concomitant]
     Active Substance: RANITIDINE HYDROCHLORIDE
     Dosage: UNK
  181. METHYLPREDNISOLONE [Concomitant]
     Active Substance: METHYLPREDNISOLONE
     Dosage: ONGOING = CHECKED
     Dates: start: 20191210
  182. METHYLPREDNISOLONE [Concomitant]
     Active Substance: METHYLPREDNISOLONE
     Dosage: UNK
     Dates: start: 20191210
  183. VIBRAMYCIN [Concomitant]
     Active Substance: DOXYCYCLINE
     Indication: Sinusitis
     Dosage: ONGOING = NOT CHECKED
     Route: 065
     Dates: start: 20180417, end: 20180615
  184. XGEVA [Concomitant]
     Active Substance: DENOSUMAB
     Indication: Breast cancer metastatic
     Dosage: UNK
     Dates: start: 20181017
  185. XGEVA [Concomitant]
     Active Substance: DENOSUMAB
     Dosage: 120 MG, MONTHLY, (MOST RECENT DOSE PRIOR TO THE EVENT: 02MAR2021)
     Dates: start: 20170505, end: 20180329
  186. XGEVA [Concomitant]
     Active Substance: DENOSUMAB
     Dosage: UNK
     Dates: start: 20181017
  187. XGEVA [Concomitant]
     Active Substance: DENOSUMAB
     Dosage: UNK
     Dates: start: 20170505, end: 20180329

REACTIONS (23)
  - Dyspnoea exertional [Recovered/Resolved]
  - Polyneuropathy [Unknown]
  - Condition aggravated [Not Recovered/Not Resolved]
  - Flank pain [Recovered/Resolved]
  - Ill-defined disorder [Recovered/Resolved]
  - Renal pain [Recovered/Resolved]
  - Pain in jaw [Recovered/Resolved]
  - Diarrhoea [Recovered/Resolved]
  - Dysgeusia [Recovered/Resolved]
  - Dyspnoea [Recovered/Resolved]
  - Dyspnoea [Recovered/Resolved]
  - Ejection fraction decreased [Recovered/Resolved]
  - Ejection fraction decreased [Recovered/Resolved]
  - Ejection fraction decreased [Not Recovered/Not Resolved]
  - Ejection fraction decreased [Recovered/Resolved]
  - Fatigue [Recovered/Resolved]
  - Hypertension [Recovered/Resolved]
  - Hypertension [Recovered/Resolved]
  - Pain [Recovered/Resolved]
  - Paraesthesia [Recovered/Resolved]
  - Pyrexia [Not Recovered/Not Resolved]
  - Sinusitis [Recovered/Resolved]
  - Underdose [Unknown]

NARRATIVE: CASE EVENT DATE: 20171030
